FAERS Safety Report 7357257-7 (Version None)
Quarter: 2011Q1

REPORT INFORMATION
  Report Type: 
  Country: None (occurrence: None)
  Receive Date: 20110317
  Receipt Date: 20110307
  Transmission Date: 20110831
  Serious: No
  Sender: FDA-Public Use
  Company Number: US-PFIZER INC-US-WYE-H12436109

PATIENT
  Sex: Female
  Weight: 72.562 kg

DRUGS (4)
  1. ALPRAZOLAM [Interacting]
  2. PRISTIQ [Suspect]
     Indication: BONE PAIN
     Dosage: 50.0 MG, 1X/DAY
     Route: 048
     Dates: start: 20091001, end: 20090101
  3. PRISTIQ [Interacting]
     Indication: DEPRESSION
     Dosage: 50.0 MG, 1X/2 DAY
     Route: 048
     Dates: start: 20090101
  4. TRAZODONE [Concomitant]

REACTIONS (8)
  - DRUG INEFFECTIVE [None]
  - NERVOUSNESS [None]
  - FEELING ABNORMAL [None]
  - INHIBITORY DRUG INTERACTION [None]
  - ENERGY INCREASED [None]
  - INSOMNIA [None]
  - RESTLESSNESS [None]
  - ANXIETY [None]
